FAERS Safety Report 6707521-7 (Version None)
Quarter: 2010Q2

REPORT INFORMATION
  Report Type: 
  Country: None (occurrence: None)
  Receive Date: 20100503
  Receipt Date: 20090417
  Transmission Date: 20101027
  Serious: Yes (Other)
  Sender: FDA-Public Use
  Company Number: US-BAYER-200918591NA

PATIENT
  Sex: Female

DRUGS (2)
  1. AVELOX [Suspect]
     Indication: DRUG USE FOR UNKNOWN INDICATION
     Dates: start: 20090305
  2. AVELOX [Suspect]
     Dates: start: 20090409

REACTIONS (6)
  - ABNORMAL DREAMS [None]
  - DIZZINESS [None]
  - FEELING JITTERY [None]
  - HALLUCINATION [None]
  - HEADACHE [None]
  - HEART RATE INCREASED [None]
